FAERS Safety Report 17316598 (Version 1)
Quarter: 2020Q1

REPORT INFORMATION
  Report Type: Report from Study
  Country: KE (occurrence: KE)
  Receive Date: 20200124
  Receipt Date: 20200124
  Transmission Date: 20200409
  Serious: Yes (Other)
  Sender: FDA-Public Use
  Company Number: KE-GILEAD-2019-0427007

PATIENT
  Age: 23 Year
  Sex: Female
  Weight: 64 kg

DRUGS (3)
  1. EMTRICITABINE/TENOFOVIR DISOPROXIL FUMARATE [Suspect]
     Active Substance: EMTRICITABINE\TENOFOVIR DISOPROXIL FUMARATE
     Indication: PROPHYLAXIS AGAINST HIV INFECTION
     Dosage: UNK
     Route: 048
     Dates: start: 20171109, end: 20180423
  2. PYRIMETHAMINE;SULFADOXINE [Concomitant]
     Indication: MALARIA PROPHYLAXIS
     Dosage: UNK
     Dates: start: 20190826, end: 20190826
  3. FERROUS FUMARATE [Concomitant]
     Active Substance: FERROUS FUMARATE
     Indication: ANAEMIA PROPHYLAXIS
     Dosage: UNK
     Dates: start: 20190826

REACTIONS (2)
  - Maternal exposure before pregnancy [Recovered/Resolved]
  - Abortion spontaneous [Recovered/Resolved]

NARRATIVE: CASE EVENT DATE: 20190616
